FAERS Safety Report 19567687 (Version 2)
Quarter: 2021Q4

REPORT INFORMATION
  Report Type: Spontaneous
  Country: GB (occurrence: US)
  Receive Date: 20210716
  Receipt Date: 20211124
  Transmission Date: 20220303
  Serious: Yes (Other)
  Sender: FDA-Public Use
  Company Number: GB-ADVANZ PHARMA-202105004425

PATIENT
  Age: 87 Year
  Sex: Female

DRUGS (3)
  1. AMIODARONE [Interacting]
     Active Substance: AMIODARONE
     Indication: Atrial fibrillation
     Dosage: 300 MG, BID
  2. DIGITEK [Interacting]
     Active Substance: DIGOXIN
     Indication: Atrial fibrillation
     Dosage: 0.125 MG, QD
  3. DIGITEK [Interacting]
     Active Substance: DIGOXIN
     Dosage: 0.250 MG, QD (DOUBLING OF DIGOXIN DOSE)

REACTIONS (6)
  - Dyschromatopsia [Recovering/Resolving]
  - Visual impairment [Recovering/Resolving]
  - Toxicity to various agents [Unknown]
  - Retinal toxicity [Recovered/Resolved]
  - Drug interaction [Recovered/Resolved]
  - Confusional state [Recovered/Resolved]
